FAERS Safety Report 17900351 (Version 1)
Quarter: 2020Q2

REPORT INFORMATION
  Report Type: Spontaneous
  Country: US (occurrence: US)
  Receive Date: 20200616
  Receipt Date: 20200616
  Transmission Date: 20200714
  Serious: Yes (Disabling, Other)
  Sender: FDA-Public Use
  Company Number: None

PATIENT
  Age: 32 Year
  Sex: Female
  Weight: 99 kg

DRUGS (3)
  1. NP THYROID [Suspect]
     Active Substance: LEVOTHYROXINE\LIOTHYRONINE
     Indication: HYPOTHYROIDISM
     Dosage: ?          QUANTITY:90 TABLET(S);?
     Route: 048
     Dates: start: 20200401, end: 20200422
  2. ARMOUR THYROID [Concomitant]
     Active Substance: THYROID, PORCINE
  3. MELATONIN [Concomitant]
     Active Substance: MELATONIN

REACTIONS (6)
  - Hyperhidrosis [None]
  - Flushing [None]
  - Palpitations [None]
  - Product odour abnormal [None]
  - Product quality issue [None]
  - Tremor [None]

NARRATIVE: CASE EVENT DATE: 20200401
